FAERS Safety Report 8174828-9 (Version None)
Quarter: 2012Q1

REPORT INFORMATION
  Report Type: 
  Country: None (occurrence: None)
  Receive Date: 20120229
  Receipt Date: 20120217
  Transmission Date: 20120608
  Serious: Yes (Disabling)
  Sender: FDA-Public Use
  Company Number: PHHY2011JP90821

PATIENT
  Sex: Male
  Weight: 80 kg

DRUGS (4)
  1. EQUA [Suspect]
     Indication: DIABETES MELLITUS
     Dosage: 100 MG, DAILY
     Route: 048
     Dates: start: 20110622, end: 20111011
  2. SITAGLIPTIN PHOSPHATE [Concomitant]
     Dosage: 50 MG, UNK
     Route: 048
     Dates: start: 20110202, end: 20110621
  3. DIOVAN [Suspect]
     Indication: HYPERTENSION
     Dosage: 40 MG, DAILY
     Route: 048
     Dates: start: 20090930
  4. AMLODIPINE [Concomitant]
     Dosage: 5 MG, UNK
     Route: 048
     Dates: start: 20091116

REACTIONS (2)
  - BLOOD ELASTASE INCREASED [None]
  - LIPASE INCREASED [None]
